FAERS Safety Report 8321699-3 (Version None)
Quarter: 2012Q2

REPORT INFORMATION
  Report Type: 
  Country: None (occurrence: None)
  Receive Date: 20120430
  Receipt Date: 20120423
  Transmission Date: 20120825
  Serious: Yes (Hospitalization)
  Sender: FDA-Public Use
  Company Number: DE-UCBSA-042272

PATIENT
  Age: 70 Year
  Sex: Male
  Weight: 85 kg

DRUGS (5)
  1. METHOTREXATE SODIUM [Concomitant]
     Indication: RHEUMATOID ARTHRITIS
     Route: 058
     Dates: start: 19920101
  2. CIMZIA [Suspect]
     Indication: RHEUMATOID ARTHRITIS
     Dosage: NO OD DOSES RECEIVED: 8
     Route: 058
     Dates: start: 20110701, end: 20110101
  3. FOLCUR [Concomitant]
     Indication: PROPHYLAXIS
     Route: 048
     Dates: start: 19920101
  4. PREDNISONE TAB [Concomitant]
     Indication: RHEUMATOID ARTHRITIS
     Dosage: 2 MG DAILY
     Route: 048
     Dates: start: 20110614
  5. SIMVASTATIN [Concomitant]
     Indication: HYPERCHOLESTEROLAEMIA
     Dosage: 20 MG
     Route: 048

REACTIONS (1)
  - CELLULITIS [None]
